FAERS Safety Report 8046694-3 (Version None)
Quarter: 2012Q1

REPORT INFORMATION
  Report Type: 
  Country: None (occurrence: None)
  Receive Date: 20120116
  Receipt Date: 20120106
  Transmission Date: 20120608
  Serious: Yes (Hospitalization)
  Sender: FDA-Public Use
  Company Number: US-BRISTOL-MYERS SQUIBB COMPANY-16336901

PATIENT
  Age: 34 Year
  Sex: Female
  Weight: 33 kg

DRUGS (2)
  1. TAXOL [Suspect]
     Indication: OESOPHAGEAL SQUAMOUS CELL CARCINOMA
     Dosage: LAST DOSE:03JAN2012
     Route: 042
     Dates: start: 20111227
  2. CISPLATIN [Suspect]
     Indication: OESOPHAGEAL SQUAMOUS CELL CARCINOMA
     Dosage: LAST DOSE:03JAN2012
     Route: 042
     Dates: start: 20111227

REACTIONS (1)
  - ABDOMINAL PAIN [None]
